FAERS Safety Report 11419148 (Version 1)
Quarter: 2015Q3

REPORT INFORMATION
  Report Type: Spontaneous
  Country: US (occurrence: None)
  Receive Date: 20150825
  Receipt Date: 20150825
  Transmission Date: 20151125
  Serious: No
  Sender: FDA-Public Use
  Company Number: None

PATIENT
  Age: 43 Year
  Sex: Male

DRUGS (1)
  1. PLEGRIDY [Suspect]
     Active Substance: PEGINTERFERON BETA-1A
     Indication: MULTIPLE SCLEROSIS
     Dosage: 1 PEN  Q 14 DAYS  SUBCUTANEOUS
     Route: 058
     Dates: start: 20150309

REACTIONS (2)
  - Influenza like illness [None]
  - Injection site erythema [None]

NARRATIVE: CASE EVENT DATE: 20150824
